FAERS Safety Report 9300637 (Version 2)
Quarter: 2013Q2

REPORT INFORMATION
  Report Type: Spontaneous
  Country: US (occurrence: US)
  Receive Date: 20130521
  Receipt Date: 20130524
  Transmission Date: 20140414
  Serious: No
  Sender: FDA-Public Use
  Company Number: US-VERTEX PHARMACEUTICALS INC-2013-006133

PATIENT
  Age: 49 Year
  Sex: Female
  Weight: 86 kg

DRUGS (5)
  1. INCIVEK [Suspect]
     Indication: HEPATITIS C
     Dosage: 750 MG, TID
     Route: 048
     Dates: start: 20130412
  2. PEGASYS [Suspect]
     Indication: HEPATITIS C
     Dosage: 180 ?G,QW
     Route: 048
     Dates: start: 20130412
  3. RIBAVIRIN [Suspect]
     Indication: HEPATITIS C
     Dosage: 600 MG IN AM; 800 MG IN PM
     Route: 048
     Dates: start: 20130413
  4. RIBAVIRIN [Suspect]
     Dosage: 200 MG IN AM; 400 MG IN PM
     Dates: start: 201304
  5. RIBAVIRIN [Suspect]
     Dosage: 200 MG, BID
     Dates: start: 201304

REACTIONS (17)
  - Dizziness [Recovered/Resolved]
  - Insomnia [Recovered/Resolved]
  - Dysuria [Not Recovered/Not Resolved]
  - Chromaturia [Not Recovered/Not Resolved]
  - Toothache [Not Recovered/Not Resolved]
  - Sensitivity of teeth [Not Recovered/Not Resolved]
  - Weight increased [Not Recovered/Not Resolved]
  - Injection site mass [Recovered/Resolved]
  - Muscle spasms [Not Recovered/Not Resolved]
  - Abdominal distension [Recovered/Resolved]
  - Faeces hard [Not Recovered/Not Resolved]
  - Injection site macule [Not Recovered/Not Resolved]
  - Fatigue [Recovered/Resolved]
  - Haemoglobin decreased [Recovered/Resolved]
  - Anal pruritus [Not Recovered/Not Resolved]
  - Nausea [Recovered/Resolved]
  - Anorectal discomfort [Not Recovered/Not Resolved]
